FAERS Safety Report 4555886-7 (Version None)
Quarter: 2005Q1

REPORT INFORMATION
  Report Type: 
  Country: None (occurrence: None)
  Receive Date: 20050112
  Receipt Date: 20040210
  Transmission Date: 20050727
  Serious: Yes (Other)
  Sender: FDA-Public Use
  Company Number: 358441

PATIENT
  Age: 25 Year
  Sex: Male

DRUGS (2)
  1. ALL-TRANS-RETINOIC ACD (TRETINOIN) [Suspect]
     Indication: ACUTE PROMYELOCYTIC LEUKAEMIA
  2. CYTARABINE [Concomitant]

REACTIONS (1)
  - RETINOIC ACID SYNDROME [None]
